FAERS Safety Report 9814620 (Version 1)
Quarter: 2014Q1

REPORT INFORMATION
  Report Type: Spontaneous
  Country: DK (occurrence: FR)
  Receive Date: 20140113
  Receipt Date: 20140113
  Transmission Date: 20141002
  Serious: Yes (Hospitalization)
  Sender: FDA-Public Use
  Company Number: FR-FRI-1000052791

PATIENT
  Age: 37 Year
  Sex: Male

DRUGS (7)
  1. ESCITALOPRAM [Suspect]
     Dosage: 1 DF
     Route: 048
  2. ESCITALOPRAM [Suspect]
     Dosage: ESCITALOPRAM 20 MG OVERDOSE: 42 TABLETS ONCE.
     Route: 048
     Dates: start: 20130418, end: 20130418
  3. ZOPICLONE [Suspect]
     Dosage: 1 DF
     Route: 048
  4. ZOPICLONE [Suspect]
     Dosage: ZOPICLONE OVERDOSE: 42 TABLETS ONCE.
     Route: 048
     Dates: start: 20130418, end: 20130418
  5. BACLOFEN [Suspect]
     Dosage: 1 DF
     Route: 048
  6. BACLOFEN [Suspect]
     Dosage: BACLOFEN OVERDOSE: 20 TABLETS ONCE.
     Route: 048
     Dates: start: 20130418, end: 20130418
  7. ALCOHOL [Suspect]

REACTIONS (3)
  - Depressed level of consciousness [Recovered/Resolved]
  - Electrocardiogram QT prolonged [Recovered/Resolved]
  - Overdose [Recovered/Resolved]
